FAERS Safety Report 18658296 (Version 1)
Quarter: 2020Q4

REPORT INFORMATION
  Report Type: Spontaneous
  Country: DE (occurrence: DE)
  Receive Date: 20201223
  Receipt Date: 20201223
  Transmission Date: 20210114
  Serious: Yes (Other)
  Sender: FDA-Public Use
  Company Number: DE-009507513-2012DEU009580

PATIENT
  Age: 69 Year
  Sex: Male

DRUGS (1)
  1. PEMBROLIZUMAB. [Suspect]
     Active Substance: PEMBROLIZUMAB
     Indication: HYPOPHARYNGEAL CANCER
     Dosage: 200 MILLIGRAM,(14 CYCLES), Q3W
     Dates: start: 20200121, end: 202010

REACTIONS (2)
  - Candida infection [Unknown]
  - Autoimmune blistering disease [Unknown]

NARRATIVE: CASE EVENT DATE: 202010
